FAERS Safety Report 9820645 (Version 3)
Quarter: 2014Q1

REPORT INFORMATION
  Report Type: Spontaneous
  Country: IN (occurrence: IN)
  Receive Date: 20140116
  Receipt Date: 20140214
  Transmission Date: 20141002
  Serious: Yes (Other)
  Sender: FDA-Public Use
  Company Number: IN-PFIZER INC-2014011677

PATIENT
  Age: 35 Year
  Sex: Female

DRUGS (1)
  1. DEPO-PROVERA [Suspect]
     Indication: CONTRACEPTION
     Dosage: 150 MG, EVERY 3 MONTHS
     Route: 030

REACTIONS (4)
  - Hypothyroidism [Recovered/Resolved]
  - Amenorrhoea [Recovered/Resolved]
  - Abdominal distension [Unknown]
  - Weight increased [Unknown]
